FAERS Safety Report 5502861-1 (Version None)
Quarter: 2007Q4

REPORT INFORMATION
  Report Type: 
  Country: None (occurrence: None)
  Receive Date: 20071029
  Receipt Date: 20071029
  Transmission Date: 20080405
  Serious: Yes (Other)
  Sender: FDA-Public Use
  Company Number: None

PATIENT
  Sex: Male

DRUGS (9)
  1. REVLIMID [Suspect]
     Indication: MULTIPLE MYELOMA
     Dosage: 15MG DAILY 21D/28D PO
     Route: 048
  2. PAMIDRONATE DISODIUM [Concomitant]
  3. WARFARIN SODIUM [Concomitant]
  4. MAXZIDE [Concomitant]
  5. FINASTERIDE [Concomitant]
  6. LISINOPRIL [Concomitant]
  7. VICODIN [Concomitant]
  8. SIMVASTATIN [Concomitant]
  9. NITROGLYCERIN SL [Concomitant]

REACTIONS (1)
  - NEUTROPENIA [None]
